FAERS Safety Report 15696164 (Version 2)
Quarter: 2019Q2

REPORT INFORMATION
  Report Type: Spontaneous
  Country: US (occurrence: US)
  Receive Date: 20181206
  Receipt Date: 20190603
  Transmission Date: 20190711
  Serious: Yes (Death, Hospitalization)
  Sender: FDA-Public Use
  Company Number: US-ACTELION-A-NJ2018-183168

PATIENT
  Sex: Female
  Weight: 81.63 kg

DRUGS (2)
  1. TRACLEER [Suspect]
     Active Substance: BOSENTAN
     Indication: PULMONARY ARTERIAL HYPERTENSION
     Dosage: 125 MG, BID
     Route: 048
  2. DILTIAZEM. [Concomitant]
     Active Substance: DILTIAZEM

REACTIONS (2)
  - Cerebrovascular accident [Unknown]
  - Death [Fatal]
